FAERS Safety Report 15632853 (Version 1)
Quarter: 2018Q4

REPORT INFORMATION
  Report Type: Spontaneous
  Country: US (occurrence: US)
  Receive Date: 20181119
  Receipt Date: 20181119
  Transmission Date: 20190205
  Serious: Yes (Hospitalization)
  Sender: FDA-Public Use
  Company Number: None

PATIENT
  Age: 79 Year
  Sex: Female
  Weight: 84.37 kg

DRUGS (7)
  1. XANAX [Concomitant]
     Active Substance: ALPRAZOLAM
  2. PAROXETINE. [Concomitant]
     Active Substance: PAROXETINE
  3. ADVIL [Concomitant]
     Active Substance: IBUPROFEN
  4. CALCIUM 500 [Concomitant]
  5. VITAMIN D3 [Concomitant]
     Active Substance: CHOLECALCIFEROL
  6. CAPECITABINE. [Suspect]
     Active Substance: CAPECITABINE
     Indication: RECTOSIGMOID CANCER
     Route: 048
     Dates: start: 20180610, end: 20181111
  7. LIPITOR [Concomitant]
     Active Substance: ATORVASTATIN CALCIUM

REACTIONS (1)
  - Diarrhoea [None]

NARRATIVE: CASE EVENT DATE: 20181112
